FAERS Safety Report 11246479 (Version 1)
Quarter: 2015Q3

REPORT INFORMATION
  Report Type: Spontaneous
  Country: None (occurrence: None)
  Receive Date: 20150706
  Receipt Date: 20150706
  Transmission Date: 20151125
  Serious: Yes (Disabling)
  Sender: FDA-Public Use
  Company Number: None

PATIENT
  Age: 51 Year
  Sex: Female
  Weight: 57.15 kg

DRUGS (9)
  1. QUETIAPINE FUMARATE. [Suspect]
     Active Substance: QUETIAPINE FUMARATE
     Indication: POST-TRAUMATIC STRESS DISORDER
     Dosage: 1
     Route: 048
     Dates: start: 20150413, end: 20150531
  2. CLONOZAPAM [Concomitant]
  3. TEMEZAPAM [Concomitant]
  4. TOPAMAX [Concomitant]
     Active Substance: TOPIRAMATE
  5. WOMANS 50 PLUS MULTI VITAMINS [Concomitant]
  6. QUETIAPINE FUMARATE. [Suspect]
     Active Substance: QUETIAPINE FUMARATE
     Indication: DEPRESSION
     Dosage: 1
     Route: 048
     Dates: start: 20150413, end: 20150531
  7. OLOZAPINE [Concomitant]
  8. CELEXXA [Concomitant]
  9. ASPRIL [Concomitant]

REACTIONS (4)
  - Depression [None]
  - Hyperhidrosis [None]
  - Skin odour abnormal [None]
  - Skin hyperpigmentation [None]

NARRATIVE: CASE EVENT DATE: 20150515
